FAERS Safety Report 24706590 (Version 1)
Quarter: 2024Q4

REPORT INFORMATION
  Report Type: Spontaneous
  Country: US (occurrence: US)
  Receive Date: 20241206
  Receipt Date: 20241206
  Transmission Date: 20250115
  Serious: Yes (Other)
  Sender: ELI LILLY AND COMPANY
  Company Number: US-ELI_LILLY_AND_COMPANY-US202411016280

PATIENT
  Age: 59 Year
  Sex: Female

DRUGS (3)
  1. MOUNJARO [Suspect]
     Active Substance: TIRZEPATIDE
     Indication: Weight control
     Dosage: UNK UNK, UNKNOWN
     Route: 065
  2. DUPIXENT [Suspect]
     Active Substance: DUPILUMAB
     Indication: Asthma
     Dosage: 300 MG, QOD
     Route: 058
     Dates: start: 202407
  3. XOLAIR [Concomitant]
     Active Substance: OMALIZUMAB
     Indication: Product used for unknown indication

REACTIONS (20)
  - Anaphylactic reaction [Recovered/Resolved]
  - Cough [Unknown]
  - Asthma [Unknown]
  - Weight increased [Unknown]
  - Fibromyalgia [Unknown]
  - Oral herpes [Unknown]
  - Fall [Unknown]
  - Concussion [Unknown]
  - Osteoporosis [Unknown]
  - Osteopenia [Unknown]
  - Hand deformity [Unknown]
  - Product dose omission issue [Unknown]
  - Off label use [Unknown]
  - Injection site pruritus [Recovered/Resolved]
  - Injection site erythema [Recovered/Resolved]
  - Injection site pain [Unknown]
  - Injection site rash [Unknown]
  - Throat tightness [Unknown]
  - Diarrhoea [Unknown]
  - Nausea [Unknown]

NARRATIVE: CASE EVENT DATE: 20240701
